FAERS Safety Report 4584354-1 (Version None)
Quarter: 2005Q1

REPORT INFORMATION
  Report Type: 
  Country: None (occurrence: None)
  Receive Date: 20050216
  Receipt Date: 20050211
  Transmission Date: 20050727
  Serious: Yes (Other)
  Sender: FDA-Public Use
  Company Number: US-BRISTOL-MYERS SQUIBB COMPANY-12859120

PATIENT
  Age: 50 Year
  Sex: Male
  Weight: 87 kg

DRUGS (7)
  1. ERBITUX [Suspect]
     Indication: COLON CANCER
     Dosage: PRODUCT STRENGTH: 50 ML/100 MG
     Route: 042
  2. DECADRON [Concomitant]
     Indication: PREMEDICATION
     Route: 042
  3. BENADRYL [Concomitant]
     Indication: PREMEDICATION
     Route: 042
  4. ZANTAC [Concomitant]
     Indication: PREMEDICATION
     Route: 042
  5. OXALIPLATIN [Concomitant]
  6. FLUOROURACIL [Concomitant]
  7. LEUCOVORIN CALCIUM [Concomitant]

REACTIONS (3)
  - ALANINE AMINOTRANSFERASE INCREASED [None]
  - ASPARTATE AMINOTRANSFERASE INCREASED [None]
  - BLOOD ALKALINE PHOSPHATASE INCREASED [None]
